FAERS Safety Report 6302286-5 (Version None)
Quarter: 2009Q3

REPORT INFORMATION
  Report Type: 
  Country: None (occurrence: None)
  Receive Date: 20090810
  Receipt Date: 20090729
  Transmission Date: 20100115
  Serious: Yes (Other)
  Sender: FDA-Public Use
  Company Number: US-PFIZER INC-2009248251

PATIENT
  Sex: Male
  Weight: 97.522 kg

DRUGS (5)
  1. CELEBREX [Suspect]
     Indication: GOUT
     Dosage: 100 MG, 1X/DAY
     Route: 048
     Dates: start: 20090718
  2. CELEBREX [Suspect]
     Indication: OSTEOARTHRITIS
     Dosage: 200 MG, 1X/DAY
  3. UNSPECIFIED BLOOD PRESSURE MEDICATION [Concomitant]
  4. PEPCID [Concomitant]
  5. UNSPECIFIED THYROID MEDICATION [Concomitant]

REACTIONS (3)
  - ACTIVITIES OF DAILY LIVING IMPAIRED [None]
  - MUSCULAR WEAKNESS [None]
  - THYROID FUNCTION TEST ABNORMAL [None]
